FAERS Safety Report 8957691 (Version 1)
Quarter: 2012Q4

REPORT INFORMATION
  Report Type: 
  Country: US (occurrence: US)
  Receive Date: 20121211
  Receipt Date: 20121211
  Transmission Date: 20130627
  Serious: Yes (Death, Other)
  Sender: FDA-Public Use
  Company Number: US-ELI_LILLY_AND_COMPANY-US201211008990

PATIENT
  Age: 43 Year
  Sex: Male

DRUGS (5)
  1. CYMBALTA [Suspect]
     Indication: DEPRESSION
     Dosage: 30 mg, qd
  2. CYMBALTA [Suspect]
     Dosage: 60 mg, qd
  3. LUNESTA [Concomitant]
  4. ANTIDEPRESSANTS [Concomitant]
     Dosage: UNK
  5. AMBIEN [Concomitant]

REACTIONS (3)
  - Completed suicide [Fatal]
  - Aggression [Unknown]
  - Psychotic disorder [Unknown]
